FAERS Safety Report 9199179 (Version 1)
Quarter: 2013Q1

REPORT INFORMATION
  Report Type: Spontaneous
  Country: US (occurrence: None)
  Receive Date: 20130325
  Receipt Date: 20130325
  Transmission Date: 20140127
  Serious: No
  Sender: FDA-Public Use
  Company Number: 2013US-004535

PATIENT
  Age: 37 Year
  Sex: Female

DRUGS (2)
  1. OMONTYS (PEGINESATIDE) SOLUTION FOR INJECTION [Suspect]
     Indication: NEPHROGENIC ANAEMIA
     Route: 042
     Dates: start: 20130116, end: 20130116
  2. EPOGEN (EPOETIN ALFA) [Concomitant]

REACTIONS (3)
  - Feeling hot [None]
  - Nausea [None]
  - Vomiting [None]
